FAERS Safety Report 8574876-0 (Version None)
Quarter: 2012Q3

REPORT INFORMATION
  Report Type: 
  Country: None (occurrence: None)
  Receive Date: 20120807
  Receipt Date: 20120731
  Transmission Date: 20120928
  Serious: Yes (Death, Other)
  Sender: FDA-Public Use
  Company Number: FR-ELI_LILLY_AND_COMPANY-FR201207009090

PATIENT
  Age: 95 Year
  Sex: Male

DRUGS (2)
  1. NEXIUM [Concomitant]
     Dosage: UNK
     Dates: start: 20120601, end: 20120601
  2. HUMULIN R [Suspect]
     Dosage: UNK, UNKNOWN
     Route: 058
     Dates: start: 20120601, end: 20120601

REACTIONS (4)
  - URTICARIA [None]
  - GASTRIC ULCER [None]
  - ANAPHYLACTIC SHOCK [None]
  - GASTROINTESTINAL HAEMORRHAGE [None]
